FAERS Safety Report 6215511-6 (Version None)
Quarter: 2009Q2

REPORT INFORMATION
  Report Type: 
  Country: None (occurrence: None)
  Receive Date: 20090603
  Receipt Date: 20090525
  Transmission Date: 20091009
  Serious: Yes (Death, Life-Threatening, Hospitalization)
  Sender: FDA-Public Use
  Company Number: 2009AL003273

PATIENT
  Age: 88 Year
  Sex: Female

DRUGS (4)
  1. DICLOFENAC SODIUM [Suspect]
     Indication: PAIN
     Dosage: 50 MG;QD;PO
     Route: 048
     Dates: start: 20090105
  2. ACETYLSALICYLIC ACID SRT [Concomitant]
  3. CLOPIDOGREL [Concomitant]
  4. DIGOXIN [Concomitant]

REACTIONS (1)
  - DUODENAL ULCER [None]
